FAERS Safety Report 5650383-X (Version None)
Quarter: 2008Q1

REPORT INFORMATION
  Report Type: 
  Country: None (occurrence: None)
  Receive Date: 20080304
  Receipt Date: 20080304
  Transmission Date: 20080703
  Serious: Yes (Hospitalization)
  Sender: FDA-Public Use
  Company Number: None

PATIENT
  Sex: Female
  Weight: 61 kg

DRUGS (3)
  1. OXCARBAZEPINE [Suspect]
     Indication: SCHIZOAFFECTIVE DISORDER
     Dosage: 600MG/900MG  BID  PO
     Route: 048
     Dates: start: 20070504, end: 20070614
  2. QUETIAPINE [Concomitant]
  3. LITHIUM [Concomitant]

REACTIONS (5)
  - ADVERSE DRUG REACTION [None]
  - LIVER FUNCTION TEST ABNORMAL [None]
  - PYREXIA [None]
  - RASH ERYTHEMATOUS [None]
  - RASH GENERALISED [None]
